FAERS Safety Report 10172830 (Version 1)
Quarter: 2014Q2

REPORT INFORMATION
  Report Type: Spontaneous
  Country: BR (occurrence: BR)
  Receive Date: 20140515
  Receipt Date: 20140515
  Transmission Date: 20141212
  Serious: Yes (Hospitalization)
  Sender: FDA-Public Use
  Company Number: BR-GLAXOSMITHKLINE-A1073074A

PATIENT
  Age: 3 Year
  Sex: Male
  Weight: 14 kg

DRUGS (1)
  1. AEROLIN [Suspect]
     Indication: ASTHMA
     Dosage: 5AMP SINGLE DOSE
     Route: 065
     Dates: start: 20140506, end: 20140506

REACTIONS (4)
  - Tachycardia [Not Recovered/Not Resolved]
  - Agitation [Not Recovered/Not Resolved]
  - Accidental overdose [Unknown]
  - Off label use [Unknown]
